FAERS Safety Report 5002053-9 (Version None)
Quarter: 2006Q2

REPORT INFORMATION
  Report Type: 
  Country: None (occurrence: None)
  Receive Date: 20060515
  Receipt Date: 20060502
  Transmission Date: 20061013
  Serious: Yes (Hospitalization, Disabling)
  Sender: FDA-Public Use
  Company Number: US-MERCK-0605USA00656

PATIENT
  Age: 56 Year
  Sex: Female
  Weight: 69 kg

DRUGS (1)
  1. VIOXX [Suspect]
     Indication: EPICONDYLITIS
     Route: 048
     Dates: start: 20040601, end: 20041101

REACTIONS (5)
  - DEPRESSION [None]
  - DYSPNOEA [None]
  - EPICONDYLITIS [None]
  - HYPERTENSION [None]
  - SYNCOPE [None]
